FAERS Safety Report 9229152 (Version 1)
Quarter: 2013Q2

REPORT INFORMATION
  Report Type: Spontaneous
  Country: US (occurrence: US)
  Receive Date: 20130412
  Receipt Date: 20130412
  Transmission Date: 20140414
  Serious: Yes (Other)
  Sender: FDA-Public Use
  Company Number: US-ASTELLAS-2013US000602

PATIENT
  Age: 45 Year
  Sex: Male

DRUGS (7)
  1. PROGRAF [Suspect]
     Indication: CYTOMEGALOVIRUS VIRAEMIA
     Dosage: 2.4 MG, OVER 36 HOURS
     Route: 042
     Dates: start: 20081229, end: 20081230
  2. VALCYTE [Concomitant]
     Indication: PRODUCT USED FOR UNKNOWN INDICATION
     Dosage: 450 MG, BID
     Route: 065
  3. GANCICLOVIR [Concomitant]
     Indication: CYTOMEGALOVIRUS VIRAEMIA
     Dosage: UNK
     Route: 042
     Dates: start: 200812
  4. CYCLOSPORINE [Concomitant]
     Indication: CYTOMEGALOVIRUS VIRAEMIA
     Dosage: UNK
     Route: 065
  5. ZOFRAN                             /00955301/ [Concomitant]
     Indication: NAUSEA
     Dosage: AC MEALS
     Route: 065
     Dates: start: 200812
  6. ZOFRAN                             /00955301/ [Concomitant]
     Indication: VOMITING
  7. BACTRIM [Concomitant]
     Indication: ANTIFUNGAL PROPHYLAXIS
     Dosage: UNK
     Route: 065

REACTIONS (1)
  - Renal failure [Unknown]
